FAERS Safety Report 21964329 (Version 1)
Quarter: 2023Q1

REPORT INFORMATION
  Report Type: Spontaneous
  Country: US (occurrence: None)
  Receive Date: 20230206
  Receipt Date: 20230206
  Transmission Date: 20230417
  Serious: No
  Sender: FDA-Public Use
  Company Number: None

PATIENT
  Age: 35 Year
  Sex: Female

DRUGS (1)
  1. PCA SKIN ACNE [Suspect]
     Active Substance: BENZOYL PEROXIDE\SALICYLIC ACID
     Dates: start: 20221015, end: 20230108

REACTIONS (6)
  - Application site erythema [None]
  - Application site dryness [None]
  - Application site hypersensitivity [None]
  - Skin hyperpigmentation [None]
  - Skin exfoliation [None]
  - Scar [None]

NARRATIVE: CASE EVENT DATE: 20221231
